FAERS Safety Report 8554714-2 (Version None)
Quarter: 2012Q3

REPORT INFORMATION
  Report Type: 
  Country: None (occurrence: None)
  Receive Date: 20120731
  Receipt Date: 20120724
  Transmission Date: 20120928
  Serious: No
  Sender: FDA-Public Use
  Company Number: US-B.I. PHARMACEUTICALS,INC./RIDGEFIELD-2012-BP-16457BP

PATIENT
  Sex: Male

DRUGS (3)
  1. HEART MED [Concomitant]
  2. PRADAXA [Suspect]
     Indication: ATRIAL FIBRILLATION
     Dosage: 300 MG
     Route: 048
     Dates: start: 20110701
  3. BP MED [Concomitant]

REACTIONS (2)
  - URINARY RETENTION [None]
  - BLOOD URINE PRESENT [None]
